FAERS Safety Report 6933965-4 (Version None)
Quarter: 2010Q3

REPORT INFORMATION
  Report Type: 
  Country: None (occurrence: None)
  Receive Date: 20100820
  Receipt Date: 20100706
  Transmission Date: 20110219
  Serious: Yes (Disabling)
  Sender: FDA-Public Use
  Company Number: NL-MYLANLABS-2010S1014269

PATIENT
  Age: 35 Year
  Sex: Male
  Weight: 80 kg

DRUGS (3)
  1. RISPERIDONE [Suspect]
     Indication: PRODUCT USED FOR UNKNOWN INDICATION
     Dates: start: 20100605
  2. PAROXETINE HCL [Suspect]
     Indication: DEPRESSION
     Dates: start: 20100605
  3. DIAZEPAM [Concomitant]
     Indication: PRODUCT USED FOR UNKNOWN INDICATION
     Dates: start: 20081106

REACTIONS (4)
  - DIZZINESS [None]
  - HYPERHIDROSIS [None]
  - RESTLESSNESS [None]
  - TREMOR [None]
